FAERS Safety Report 4578637-9 (Version None)
Quarter: 2005Q1

REPORT INFORMATION
  Report Type: 
  Country: None (occurrence: None)
  Receive Date: 20050209
  Receipt Date: 20050202
  Transmission Date: 20050727
  Serious: Yes (Death, Life-Threatening, Hospitalization, Disabling)
  Sender: FDA-Public Use
  Company Number: 2005GB00221

PATIENT
  Age: 82 Year
  Sex: Male
  Weight: 70 kg

DRUGS (9)
  1. QUETIAPINE [Suspect]
     Indication: AGITATION
     Dosage: 25 MG BID PO
     Route: 048
     Dates: end: 20041230
  2. QUETIAPINE [Suspect]
     Indication: PSYCHOTIC DISORDER
     Dosage: 25 MG BID PO
     Route: 048
     Dates: end: 20041230
  3. ATARAX [Suspect]
     Indication: PRURITUS
     Dosage: 25 MG DAILY PO
     Route: 048
     Dates: start: 20041001, end: 20041220
  4. DONEPEZIL HCL [Suspect]
     Indication: DEMENTIA
     Dosage: 5 MG DAILY PO
     Route: 048
     Dates: start: 20040916, end: 20041101
  5. MEMANTINE [Concomitant]
  6. ASPIRIN [Concomitant]
  7. DIPYRIDAMOLE [Concomitant]
  8. PREDNISOLONE [Concomitant]
  9. OXYBUTYNIN [Concomitant]

REACTIONS (4)
  - GENERAL PHYSICAL HEALTH DETERIORATION [None]
  - MUSCULOSKELETAL STIFFNESS [None]
  - MYALGIA [None]
  - NEUROLEPTIC MALIGNANT SYNDROME [None]
